FAERS Safety Report 7521421-4 (Version None)
Quarter: 2011Q2

REPORT INFORMATION
  Report Type: 
  Country: None (occurrence: None)
  Receive Date: 20110603
  Receipt Date: 20110524
  Transmission Date: 20111010
  Serious: Yes (Hospitalization)
  Sender: FDA-Public Use
  Company Number: US-JNJFOC-20110511070

PATIENT
  Sex: Male
  Weight: 77.11 kg

DRUGS (5)
  1. DURAGESIC-100 [Suspect]
     Route: 062
     Dates: start: 20000101, end: 20080101
  2. DURAGESIC-100 [Suspect]
     Indication: PANCREATIC DISORDER
     Route: 062
     Dates: start: 20110501
  3. ASPIRIN [Concomitant]
     Indication: CARDIOVASCULAR DISORDER
     Route: 048
  4. FENTANYL-100 [Suspect]
     Indication: PANCREATIC DISORDER
     Route: 062
     Dates: start: 20080101, end: 20110501
  5. XANAX [Concomitant]
     Indication: ANXIETY
     Route: 048
     Dates: start: 19950101

REACTIONS (8)
  - MALAISE [None]
  - FEELING ABNORMAL [None]
  - DEVICE RELATED INFECTION [None]
  - DRUG INEFFECTIVE [None]
  - ADVERSE EVENT [None]
  - HEART RATE DECREASED [None]
  - TREATMENT NONCOMPLIANCE [None]
  - PANCREATIC DISORDER [None]
